FAERS Safety Report 6018508-4 (Version None)
Quarter: 2008Q4

REPORT INFORMATION
  Report Type: 
  Country: None (occurrence: None)
  Receive Date: 20081223
  Receipt Date: 20081212
  Transmission Date: 20090506
  Serious: Yes (Death, Other)
  Sender: FDA-Public Use
  Company Number: AT-GENENTECH-274058

PATIENT
  Sex: Male

DRUGS (8)
  1. BEVACIZUMAB [Suspect]
     Indication: COLORECTAL CANCER
     Dosage: 5 MG/KG, Q14D
     Route: 042
     Dates: start: 20080527
  2. CAPECITABINE [Suspect]
     Indication: COLORECTAL CANCER
     Dosage: 2500 MG/M2, UNK
     Route: 042
     Dates: start: 20080527
  3. CAPECITABINE [Suspect]
     Dosage: 2000 MG/M2, UNK
     Route: 042
     Dates: start: 20080623
  4. OXALIPLATIN [Suspect]
     Indication: COLORECTAL CANCER
     Dosage: 100 MG/M2, Q14D
     Route: 042
     Dates: start: 20080527
  5. NOVALGIN [Concomitant]
     Indication: DRUG USE FOR UNKNOWN INDICATION
     Dosage: UNK
     Dates: start: 20080601
  6. IBUPROFEN [Concomitant]
     Indication: DRUG USE FOR UNKNOWN INDICATION
     Dosage: UNK
     Dates: start: 20080601
  7. NEXIUM [Concomitant]
     Indication: DRUG USE FOR UNKNOWN INDICATION
     Dosage: UNK
     Dates: start: 20080601
  8. NEORECORMON [Concomitant]
     Indication: DRUG USE FOR UNKNOWN INDICATION
     Dosage: UNK
     Dates: start: 20080601

REACTIONS (2)
  - PNEUMOTHORAX [None]
  - PULMONARY OEDEMA [None]
